FAERS Safety Report 12212769 (Version 1)
Quarter: 2016Q1

REPORT INFORMATION
  Report Type: Spontaneous
  Country: US (occurrence: US)
  Receive Date: 20160328
  Receipt Date: 20160328
  Transmission Date: 20160526
  Serious: No
  Sender: FDA-Public Use
  Company Number: US-ASTRAZENECA-2016SE23704

PATIENT
  Age: 19576 Day
  Sex: Male
  Weight: 90.7 kg

DRUGS (1)
  1. MOVANTIK [Suspect]
     Active Substance: NALOXEGOL OXALATE
     Indication: ABDOMINAL DISCOMFORT
     Dosage: DAILY
     Route: 048
     Dates: start: 20160302

REACTIONS (3)
  - Abdominal pain upper [Unknown]
  - Dyspepsia [Unknown]
  - Diarrhoea [Unknown]

NARRATIVE: CASE EVENT DATE: 20160302
